FAERS Safety Report 7606975-1 (Version None)
Quarter: 2011Q3

REPORT INFORMATION
  Report Type: 
  Country: None (occurrence: None)
  Receive Date: 20110713
  Receipt Date: 20110711
  Transmission Date: 20111222
  Serious: Yes (Other)
  Sender: FDA-Public Use
  Company Number: US-TEVA-290133USA

PATIENT
  Age: 82 Year
  Sex: Male

DRUGS (2)
  1. WARFARIN SODIUM [Interacting]
     Dosage: 4 MILLIGRAM;
  2. CLARAVIS [Suspect]
     Indication: PROPHYLAXIS
     Dosage: 10 MILLIGRAM;
     Route: 048

REACTIONS (2)
  - INTERNATIONAL NORMALISED RATIO INCREASED [None]
  - DRUG INTERACTION [None]
